FAERS Safety Report 8193930-9 (Version None)
Quarter: 2012Q1

REPORT INFORMATION
  Report Type: 
  Country: None (occurrence: None)
  Receive Date: 20120308
  Receipt Date: 20120302
  Transmission Date: 20120608
  Serious: Yes (Death)
  Sender: FDA-Public Use
  Company Number: US-CELGENEUS-163-21880-11120954

PATIENT
  Sex: Female

DRUGS (25)
  1. REVLIMID [Suspect]
     Indication: MULTIPLE MYELOMA
     Dosage: 10 MILLIGRAM
     Route: 048
     Dates: start: 20111111, end: 20111113
  2. MULTI-VITAMINS [Concomitant]
     Route: 048
  3. PNEUMOVAX 23 [Concomitant]
     Route: 065
     Dates: start: 20080303
  4. VALTREX [Concomitant]
     Route: 065
     Dates: start: 20110801
  5. NEURONTIN [Concomitant]
     Dosage: 300 MILLIGRAM
     Route: 065
  6. VITAMIN B1 TAB [Concomitant]
     Dosage: 100 MILLIGRAM
     Route: 065
  7. VITAMIN B6 [Concomitant]
     Dosage: 100 MILLIGRAM
     Route: 065
  8. VITAMIN D2 [Concomitant]
     Dosage: 2,000 UNITS
     Route: 065
  9. DECADRON [Concomitant]
     Dosage: 4 MILLIGRAM
     Route: 065
  10. FLUZONE [Concomitant]
     Route: 065
  11. PERCOCET [Concomitant]
     Dosage: 5/325
     Route: 065
  12. VALTREX [Concomitant]
     Indication: HERPES ZOSTER
     Dosage: 500 MILLIGRAM
     Route: 065
  13. ATIVAN [Concomitant]
     Dosage: .5 MILLIGRAM
     Route: 065
  14. DECADRON [Concomitant]
     Dosage: 20 MILLIGRAM
     Route: 065
  15. ZOLOFT [Concomitant]
     Indication: INSOMNIA
     Dosage: 50 MILLIGRAM
     Route: 065
     Dates: start: 20110824
  16. OXYCODONE HCL [Concomitant]
     Dosage: 5 MILLIGRAM
     Route: 065
  17. FLAGYL [Concomitant]
     Dosage: 250 MILLIGRAM
     Route: 065
     Dates: start: 20110101
  18. DEXAMETHASONE [Concomitant]
     Dosage: 40 MILLIGRAM
     Route: 065
  19. PROLIA [Concomitant]
     Indication: OSTEOPOROSIS
     Route: 065
     Dates: start: 20111006
  20. REVLIMID [Suspect]
     Dosage: 10 MILLIGRAM
     Route: 048
     Dates: start: 20111116, end: 20111117
  21. CYTOXAN [Concomitant]
     Route: 041
     Dates: start: 20100818
  22. VELCADE [Concomitant]
     Route: 065
     Dates: start: 20100818
  23. DULCOLAX [Concomitant]
     Route: 048
  24. CIPRO [Concomitant]
     Indication: DIVERTICULITIS
     Dosage: 500 MILLIGRAM
     Route: 065
     Dates: start: 20110605
  25. FEREHEME [Concomitant]
     Indication: IRON DEFICIENCY
     Route: 041
     Dates: start: 20110428

REACTIONS (7)
  - RENAL TUBULAR NECROSIS [None]
  - ATRIAL FIBRILLATION [None]
  - ASPIRATION BRONCHIAL [None]
  - CARDIAC FAILURE CONGESTIVE [None]
  - MEGACOLON [None]
  - RENAL FAILURE ACUTE [None]
  - INTRA-ABDOMINAL HAEMATOMA [None]
